FAERS Safety Report 11976945 (Version 1)
Quarter: 2016Q1

REPORT INFORMATION
  Report Type: Spontaneous
  Country: DE (occurrence: DE)
  Receive Date: 20160129
  Receipt Date: 20160129
  Transmission Date: 20160526
  Serious: Yes (Disabling)
  Sender: FDA-Public Use
  Company Number: DE-PFIZER INC-2016049077

PATIENT
  Sex: Female
  Weight: 60 kg

DRUGS (3)
  1. STALEVO [Suspect]
     Active Substance: CARBIDOPA\ENTACAPONE\LEVODOPA
     Indication: PARKINSON^S DISEASE
     Dosage: 1 DF, DAILY (12.5/200/50 MG, IN MORNING AT 05 O CLOCK)
     Route: 048
     Dates: start: 201510
  2. PANTOPRAZOLE [Suspect]
     Active Substance: PANTOPRAZOLE SODIUM
     Dosage: UNK, 1X/DAY (IN MORNING AT 06 O^ CLOCK
     Dates: start: 201510
  3. SAFINAMIDE [Concomitant]
     Active Substance: SAFINAMIDE
     Dosage: UNK
     Dates: start: 201510

REACTIONS (2)
  - Akinesia [Recovered/Resolved]
  - Drug dose omission [Unknown]
